FAERS Safety Report 17412017 (Version 1)
Quarter: 2020Q1

REPORT INFORMATION
  Report Type: Spontaneous
  Country: NL (occurrence: NL)
  Receive Date: 20200213
  Receipt Date: 20200213
  Transmission Date: 20200409
  Serious: Yes (Other)
  Sender: FDA-Public Use
  Company Number: NL-009507513-2001NLD004677

PATIENT
  Age: 75 Year
  Sex: Male
  Weight: 78 kg

DRUGS (12)
  1. THYRAX [Concomitant]
     Active Substance: LEVOTHYROXINE
     Dosage: 50 MICROGRAM, 1 TIME A DAY
  2. SIMVASTATIN. [Concomitant]
     Active Substance: SIMVASTATIN
     Dosage: 10 MILLIGRAM, 1 TIME PER DAY 1 PIECE
     Route: 048
  3. ENALAPRIL [Concomitant]
     Active Substance: ENALAPRIL
     Dosage: 5 MILLIGRAM, 1 TIME PER DAY 1 PIECE
     Route: 048
  4. BETAMETHASONE. [Concomitant]
     Active Substance: BETAMETHASONE
     Dosage: 1 MG/G ; 4 TIMES A WEEK TOPICAL APPLICATION ON ALL SPOTS
     Route: 003
  5. TIOTROPIUM BROMIDE [Concomitant]
     Active Substance: TIOTROPIUM BROMIDE
     Dosage: UNK, INHALATION CAPSULE 18 UG (=10UG), 1 TIME PER DAY 1 DOSE
  6. CETOMACROGOL 1000 (+) PETROLATUM [Concomitant]
     Dosage: CREAM WITH VASELINE 20%, SMEAR WHOLE SKIN 1-2 TIMES A DAY TOPICAL APPLICATION
     Route: 003
  7. ASPIRIN. [Concomitant]
     Active Substance: ASPIRIN
     Dosage: 80 MILLIGRAM, 1 TIME PER 1 DAY 1 PIECE
     Route: 048
     Dates: start: 2012
  8. METOPROLOL. [Concomitant]
     Active Substance: METOPROLOL
     Dosage: 50 MILLIGRAM, 1 TIME PER DAY 1 PIECE
  9. KEYTRUDA [Suspect]
     Active Substance: PEMBROLIZUMAB
     Indication: LUNG SQUAMOUS CELL CARCINOMA STAGE IV
  10. FUROSEMIDE. [Concomitant]
     Active Substance: FUROSEMIDE
     Dosage: 1 DOSE OF 40 MILLIGRAM, ONCE A DAY DURING 3 DAYS
  11. KEYTRUDA [Suspect]
     Active Substance: PEMBROLIZUMAB
     Indication: NON-SMALL CELL LUNG CANCER
     Dosage: 6 CYLCES, 200 MG, EVERY 3 WEEKS
     Route: 042
     Dates: start: 201909
  12. OMEPRAZOLE. [Concomitant]
     Active Substance: OMEPRAZOLE
     Dosage: 20 MILLIGRAM, 1 TIME PER DAY 1 PIECE, FORMULATION: GASTRO-RESISTANT CAPSULE
     Route: 048

REACTIONS (2)
  - Cataract [Unknown]
  - Oedema peripheral [Recovered/Resolved]

NARRATIVE: CASE EVENT DATE: 2019
